FAERS Safety Report 5194454-3 (Version None)
Quarter: 2006Q4

REPORT INFORMATION
  Report Type: 
  Country: None (occurrence: None)
  Receive Date: 20061222
  Receipt Date: 20061214
  Transmission Date: 20070319
  Serious: Yes (Hospitalization)
  Sender: FDA-Public Use
  Company Number: 2006SP007566

PATIENT
  Age: 69 Year
  Sex: Male
  Weight: 97 kg

DRUGS (2)
  1. TEMODAR [Suspect]
     Indication: GLIOBLASTOMA MULTIFORME
     Dosage: 160 MG;QD;PO
     Route: 048
     Dates: start: 20061002, end: 20061110
  2. RADIATION [Suspect]
     Indication: GLIOBLASTOMA MULTIFORME
     Dates: start: 20061002, end: 20061110

REACTIONS (11)
  - AORTIC DILATATION [None]
  - ASTHENIA [None]
  - CULTURE POSITIVE [None]
  - CYTOMEGALOVIRUS INFECTION [None]
  - GAIT DISTURBANCE [None]
  - INCORRECT DOSE ADMINISTERED [None]
  - INTERSTITIAL LUNG DISEASE [None]
  - PLATELET COUNT DECREASED [None]
  - PNEUMONITIS [None]
  - TRICUSPID VALVE INCOMPETENCE [None]
  - WHITE BLOOD CELL COUNT DECREASED [None]
